FAERS Safety Report 16806139 (Version 2)
Quarter: 2019Q3

REPORT INFORMATION
  Report Type: Report from Study
  Country: None (occurrence: US)
  Receive Date: 20190913
  Receipt Date: 20190927
  Transmission Date: 20191005
  Serious: Yes (Other)
  Sender: FDA-Public Use
  Company Number: US-ABBVIE-19K-163-2917651-00

PATIENT
  Sex: Female

DRUGS (1)
  1. HUMIRA [Suspect]
     Active Substance: ADALIMUMAB
     Indication: RHEUMATOID ARTHRITIS
     Route: 058

REACTIONS (6)
  - Shock [Not Recovered/Not Resolved]
  - Cardiac disorder [Recovering/Resolving]
  - Renal disorder [Recovering/Resolving]
  - Gastrointestinal haemorrhage [Unknown]
  - Apparent death [Unknown]
  - Adverse drug reaction [Not Recovered/Not Resolved]
